FAERS Safety Report 21666032 (Version 1)
Quarter: 2022Q4

REPORT INFORMATION
  Report Type: Report from Study
  Country: PA (occurrence: PA)
  Receive Date: 20221201
  Receipt Date: 20221201
  Transmission Date: 20230112
  Serious: Yes (Hospitalization, Other)
  Sender: FDA-Public Use
  Company Number: PA-002147023-NVSC2022PA276464

PATIENT
  Age: 51 Year
  Sex: Male

DRUGS (1)
  1. SACUBITRIL\VALSARTAN [Suspect]
     Active Substance: SACUBITRIL\VALSARTAN
     Indication: Cardiac failure
     Dosage: 200 MG, BID
     Route: 048
     Dates: start: 2020, end: 202210

REACTIONS (2)
  - Pulmonary oedema [Recovering/Resolving]
  - Obesity [Recovering/Resolving]

NARRATIVE: CASE EVENT DATE: 20221001
